FAERS Safety Report 18567304 (Version 1)
Quarter: 2020Q4

REPORT INFORMATION
  Report Type: Spontaneous
  Country: GB (occurrence: GB)
  Receive Date: 20201201
  Receipt Date: 20201201
  Transmission Date: 20210114
  Serious: Yes (Hospitalization)
  Sender: FDA-Public Use
  Company Number: GB-BEH-2020125608

PATIENT
  Age: 75 Year
  Sex: Female

DRUGS (3)
  1. LATANOPROST. [Concomitant]
     Active Substance: LATANOPROST
     Dosage: ONE DROP IN BOTH EYES AT NIGHT. 50 MICROGRAMS/ML (1/12 MILLILITER)
     Route: 061
  2. PRIVIGEN [Suspect]
     Active Substance: HUMAN IMMUNOGLOBULIN G
     Indication: NEUROPATHY PERIPHERAL
     Dosage: 70 GRAM (20G/200ML VIALS), QMT
     Route: 041
     Dates: start: 20200708, end: 20200708
  3. ATORVASTATIN [Concomitant]
     Active Substance: ATORVASTATIN
     Dosage: 20 MILLIGRAM, HS (NIGHT)
     Route: 048

REACTIONS (3)
  - No adverse event [Unknown]
  - Partial seizures [Recovered/Resolved]
  - Off label use [Unknown]

NARRATIVE: CASE EVENT DATE: 20200708
